FAERS Safety Report 17174625 (Version 1)
Quarter: 2019Q4

REPORT INFORMATION
  Report Type: Spontaneous
  Country: US (occurrence: US)
  Receive Date: 20191219
  Receipt Date: 20191219
  Transmission Date: 20200122
  Serious: Yes (Other)
  Sender: FDA-Public Use
  Company Number: US-BAYER-2019-229592

PATIENT
  Age: 79 Year
  Sex: Female

DRUGS (2)
  1. BAYER ASPIRIN [Suspect]
     Active Substance: ASPIRIN
     Dosage: 1 DF, QD
     Route: 048
  2. OMEPRAZOLE. [Concomitant]
     Active Substance: OMEPRAZOLE

REACTIONS (1)
  - Gastric ulcer [Unknown]
